FAERS Safety Report 7292864-1 (Version None)
Quarter: 2011Q1

REPORT INFORMATION
  Report Type: 
  Country: None (occurrence: None)
  Receive Date: 20110204
  Receipt Date: 20110202
  Transmission Date: 20110831
  Serious: Yes (Life-Threatening, Hospitalization)
  Sender: FDA-Public Use
  Company Number: 2010SP033996

PATIENT
  Age: 57 Year
  Sex: Female

DRUGS (17)
  1. TEMOZOLOMIDE [Suspect]
     Indication: NON-SMALL CELL LUNG CANCER
     Dosage: 125 MG;QD
     Dates: start: 20100225, end: 20100615
  2. MULTI-VITAMIN [Concomitant]
  3. ACETAMINOPHEN [Concomitant]
  4. ASPIRIN [Concomitant]
  5. FOLIC ACID [Concomitant]
  6. HEPARIN [Concomitant]
  7. HEPARIN SODIUM [Concomitant]
  8. MOXOFLOXACIN [Concomitant]
  9. VITAMIN B1 TAB [Concomitant]
  10. MAGNESIUM HYDROXIDE [Concomitant]
  11. LABETOL HCL [Concomitant]
  12. ACETAMINOPHEN [Concomitant]
  13. AVELOX [Concomitant]
  14. LIPITOR [Concomitant]
  15. SODIUM CHLORIDE [Concomitant]
  16. ACETAMINOPHEN [Concomitant]
  17. PROTONIX [Concomitant]

REACTIONS (3)
  - NAUSEA [None]
  - LYMPHOPENIA [None]
  - PNEUMONIA [None]
